FAERS Safety Report 8218399-7 (Version None)
Quarter: 2012Q1

REPORT INFORMATION
  Report Type: 
  Country: None (occurrence: None)
  Receive Date: 20120319
  Receipt Date: 20120312
  Transmission Date: 20120608
  Serious: Yes (Other)
  Sender: FDA-Public Use
  Company Number: GB-GLAXOSMITHKLINE-B0787370A

PATIENT
  Age: 69 Year
  Sex: Female

DRUGS (5)
  1. ALBUTEROL [Concomitant]
     Route: 055
  2. DILTIAZEM HCL [Concomitant]
  3. OMEPRAZOLE [Concomitant]
  4. FLUTICASONE PROPIONATE/SALMETEROL [Suspect]
     Indication: CHRONIC OBSTRUCTIVE PULMONARY DISEASE
     Route: 055
     Dates: start: 20120228, end: 20120228
  5. ESCITALOPRAM [Concomitant]

REACTIONS (2)
  - TONGUE DISORDER [None]
  - SWOLLEN TONGUE [None]
